FAERS Safety Report 8965904 (Version 1)
Quarter: 2012Q4

REPORT INFORMATION
  Report Type: Report from Study
  Country: US (occurrence: US)
  Receive Date: 20121217
  Receipt Date: 20121217
  Transmission Date: 20130627
  Serious: No
  Sender: FDA-Public Use
  Company Number: US-ABBOTT-12P-163-0985450-00

PATIENT
  Age: 72 Year
  Sex: Female

DRUGS (1)
  1. TRILIPIX [Suspect]

REACTIONS (1)
  - Myalgia [Not Recovered/Not Resolved]
